FAERS Safety Report 10302105 (Version 1)
Quarter: 2014Q3

REPORT INFORMATION
  Report Type: Spontaneous
  Country: US (occurrence: US)
  Receive Date: 20140714
  Receipt Date: 20140714
  Transmission Date: 20150326
  Serious: No
  Sender: FDA-Public Use
  Company Number: US-009507513-1407USA006080

PATIENT
  Sex: Female

DRUGS (2)
  1. ASPIRIN. [Suspect]
     Active Substance: ASPIRIN
  2. JANUVIA [Suspect]
     Active Substance: SITAGLIPTIN PHOSPHATE
     Indication: DIABETES MELLITUS
     Dosage: 100 MG, QAM
     Route: 048
     Dates: start: 201304

REACTIONS (3)
  - Tinnitus [Not Recovered/Not Resolved]
  - Blood cholesterol increased [Unknown]
  - Insomnia [Unknown]

NARRATIVE: CASE EVENT DATE: 2013
